FAERS Safety Report 8057555-8 (Version None)
Quarter: 2012Q1

REPORT INFORMATION
  Report Type: 
  Country: None (occurrence: None)
  Receive Date: 20120120
  Receipt Date: 20120113
  Transmission Date: 20120608
  Serious: Yes (Life-Threatening, Hospitalization, Other)
  Sender: FDA-Public Use
  Company Number: PT-BRISTOL-MYERS SQUIBB COMPANY-16356263

PATIENT
  Age: 56 Year
  Sex: Male

DRUGS (1)
  1. ERBITUX [Suspect]
     Indication: HEAD AND NECK CANCER
     Dosage: 3 INF RECENT INF:9DEC2011 DOSE:250MG/M2
     Route: 042
     Dates: start: 20111125

REACTIONS (1)
  - INTESTINAL PERFORATION [None]
